FAERS Safety Report 23220568 (Version 5)
Quarter: 2024Q4

REPORT INFORMATION
  Report Type: Report from Study
  Country: JP (occurrence: JP)
  Receive Date: 20231123
  Receipt Date: 20241220
  Transmission Date: 20250115
  Serious: Yes (Death, Life-Threatening, Hospitalization)
  Sender: ABBVIE
  Company Number: JP-ABBVIE-5506851

PATIENT
  Age: 69 Year
  Sex: Male

DRUGS (39)
  1. SILODOSIN [Suspect]
     Active Substance: SILODOSIN
     Indication: Product used for unknown indication
     Route: 048
     Dates: end: 20230828
  2. VIBEGRON [Concomitant]
     Active Substance: VIBEGRON
     Indication: Product used for unknown indication
     Route: 048
     Dates: start: 20230905
  3. VONOPRAZAN FUMARATE [Concomitant]
     Active Substance: VONOPRAZAN FUMARATE
     Indication: Product used for unknown indication
     Route: 048
     Dates: end: 20230924
  4. BETHANECHOL CHLORIDE [Concomitant]
     Active Substance: BETHANECHOL CHLORIDE
     Indication: Product used for unknown indication
     Route: 048
     Dates: end: 20230828
  5. URSO [Concomitant]
     Active Substance: URSODIOL
     Indication: Product used for unknown indication
     Route: 048
     Dates: end: 20230828
  6. ONEALFA [Concomitant]
     Active Substance: ALFACALCIDOL
     Indication: Product used for unknown indication
     Route: 048
     Dates: end: 20230905
  7. CARVEDILOL [Concomitant]
     Active Substance: CARVEDILOL
     Indication: Product used for unknown indication
     Route: 048
     Dates: end: 20230905
  8. LIVALO [Concomitant]
     Active Substance: PITAVASTATIN CALCIUM
     Indication: Product used for unknown indication
     Route: 048
     Dates: end: 20230905
  9. ZETIA [Concomitant]
     Active Substance: EZETIMIBE
     Indication: Product used for unknown indication
     Route: 048
     Dates: end: 20230905
  10. XARELTO [Concomitant]
     Active Substance: RIVAROXABAN
     Indication: Product used for unknown indication
     Route: 048
     Dates: end: 20230905
  11. MEROPENEM [Concomitant]
     Active Substance: MEROPENEM
     Indication: Product used for unknown indication
     Route: 041
     Dates: start: 20230801, end: 20230816
  12. AMPICILLIN SODIUM\SULBACTAM SODIUM [Concomitant]
     Active Substance: AMPICILLIN SODIUM\SULBACTAM SODIUM
     Indication: Product used for unknown indication
     Route: 042
     Dates: start: 20230823, end: 20230826
  13. VANCOMYCIN [Concomitant]
     Active Substance: VANCOMYCIN
     Indication: Product used for unknown indication
     Route: 041
     Dates: start: 20230904, end: 20230920
  14. NOREPINEPHRINE [Concomitant]
     Active Substance: NOREPINEPHRINE\NOREPINEPHRINE BITARTRATE
     Indication: Product used for unknown indication
     Route: 042
     Dates: start: 20230905, end: 20230925
  15. PROPOFOL [Concomitant]
     Active Substance: PROPOFOL
     Indication: Product used for unknown indication
     Route: 042
     Dates: start: 20230829, end: 20230904
  16. FENTANYL [Concomitant]
     Active Substance: FENTANYL
     Indication: Product used for unknown indication
     Route: 042
     Dates: start: 20230829, end: 20230925
  17. VFEND [Suspect]
     Active Substance: VORICONAZOLE
     Indication: Bronchopulmonary aspergillosis
     Route: 048
     Dates: start: 20230906, end: 20230912
  18. VFEND [Suspect]
     Active Substance: VORICONAZOLE
     Indication: Bronchopulmonary aspergillosis
     Route: 048
     Dates: start: 20230818, end: 20230827
  19. SULFAMETHOXAZOLE\TRIMETHOPRIM [Suspect]
     Active Substance: SULFAMETHOXAZOLE\TRIMETHOPRIM
     Indication: Pneumocystis jirovecii pneumonia
     Route: 048
     Dates: start: 20230828, end: 20230909
  20. SULFAMETHOXAZOLE\TRIMETHOPRIM [Suspect]
     Active Substance: SULFAMETHOXAZOLE\TRIMETHOPRIM
     Indication: Pneumocystis jirovecii pneumonia
     Route: 048
     Dates: start: 20230905, end: 20230911
  21. TAVNEOS [Suspect]
     Active Substance: AVACOPAN
     Indication: Microscopic polyangiitis
     Route: 048
     Dates: start: 20230418, end: 20230828
  22. ATOVAQUONE [Concomitant]
     Active Substance: ATOVAQUONE
     Indication: Antifungal prophylaxis
     Route: 048
     Dates: end: 20230828
  23. ATOVAQUONE [Concomitant]
     Active Substance: ATOVAQUONE
     Indication: Antifungal prophylaxis
     Route: 048
     Dates: start: 20230916, end: 20230925
  24. PREDNISOLONE [Suspect]
     Active Substance: PREDNISOLONE
     Indication: Pneumocystis jirovecii pneumonia
     Route: 048
     Dates: end: 20230504
  25. PREDNISOLONE [Suspect]
     Active Substance: PREDNISOLONE
     Indication: Pneumocystis jirovecii pneumonia
     Route: 048
     Dates: start: 20230505, end: 20230529
  26. PREDNISOLONE [Suspect]
     Active Substance: PREDNISOLONE
     Indication: Pneumocystis jirovecii pneumonia
     Route: 048
     Dates: start: 20230530, end: 20230731
  27. PREDNISOLONE [Suspect]
     Active Substance: PREDNISOLONE
     Indication: Pneumocystis jirovecii pneumonia
     Route: 048
     Dates: start: 20230804, end: 20230817
  28. PREDNISOLONE [Suspect]
     Active Substance: PREDNISOLONE
     Indication: Pneumocystis jirovecii pneumonia
     Route: 048
     Dates: start: 20230818, end: 20230827
  29. PREDNISOLONE [Suspect]
     Active Substance: PREDNISOLONE
     Indication: Pneumocystis jirovecii pneumonia
     Route: 048
     Dates: start: 20230831, end: 20230904
  30. PREDNISOLONE [Suspect]
     Active Substance: PREDNISOLONE
     Indication: Pneumocystis jirovecii pneumonia
     Route: 048
     Dates: start: 20230905, end: 20230911
  31. PREDNISOLONE [Suspect]
     Active Substance: PREDNISOLONE
     Indication: Pneumocystis jirovecii pneumonia
     Route: 048
     Dates: start: 20230912, end: 20230918
  32. PREDNISOLONE [Suspect]
     Active Substance: PREDNISOLONE
     Indication: Pneumocystis jirovecii pneumonia
     Route: 048
     Dates: start: 20230919, end: 20230925
  33. PREDNISOLONE [Suspect]
     Active Substance: PREDNISOLONE
     Indication: Pneumocystis jirovecii pneumonia
     Route: 048
  34. METHYLPREDNISOLONE [Suspect]
     Active Substance: METHYLPREDNISOLONE
     Indication: Microscopic polyangiitis
     Dosage: 15 MG
     Route: 065
     Dates: start: 20230505, end: 20230529
  35. METHYLPREDNISOLONE [Suspect]
     Active Substance: METHYLPREDNISOLONE
     Indication: Microscopic polyangiitis
     Route: 042
     Dates: start: 20230828, end: 20230830
  36. METHYLPREDNISOLONE [Suspect]
     Active Substance: METHYLPREDNISOLONE
     Indication: Microscopic polyangiitis
     Route: 042
     Dates: start: 20230801, end: 20230803
  37. CYCLOPHOSPHAMIDE [Suspect]
     Active Substance: CYCLOPHOSPHAMIDE
     Indication: Interstitial lung disease
     Route: 065
     Dates: start: 20230804, end: 20230817
  38. CYCLOPHOSPHAMIDE [Suspect]
     Active Substance: CYCLOPHOSPHAMIDE
     Indication: Interstitial lung disease
     Route: 042
     Dates: start: 20230818, end: 20230818
  39. MICAFUNGIN SODIUM [Concomitant]
     Active Substance: MICAFUNGIN SODIUM
     Indication: Bronchopulmonary aspergillosis
     Dates: start: 20230915

REACTIONS (7)
  - Interstitial lung disease [Fatal]
  - Rhabdomyolysis [Unknown]
  - Bronchopulmonary aspergillosis [Unknown]
  - Pneumocystis jirovecii pneumonia [Unknown]
  - Acute kidney injury [Not Recovered/Not Resolved]
  - Pneumonia aspiration [Recovering/Resolving]
  - Pneumonia aspiration [Unknown]

NARRATIVE: CASE EVENT DATE: 20230730
